FAERS Safety Report 4316091-2 (Version None)
Quarter: 2004Q1

REPORT INFORMATION
  Report Type: 
  Country: None (occurrence: None)
  Receive Date: 20040312
  Receipt Date: 20040211
  Transmission Date: 20041129
  Serious: Yes (Hospitalization)
  Sender: FDA-Public Use
  Company Number: PHBS2004IS02201

PATIENT
  Age: 68 Year
  Sex: Male

DRUGS (3)
  1. DICLOFENAC [Suspect]
     Indication: ARTHRALGIA
     Dosage: 100 MG/DAY
     Route: 048
  2. SIMVASTATIN [Concomitant]
     Dosage: 100 MG/DAY
     Route: 065
  3. THYROXINE SODIUM [Concomitant]
     Dosage: .1 MG, BID
     Route: 065

REACTIONS (11)
  - COLECTOMY PARTIAL [None]
  - COLITIS [None]
  - COLON NEOPLASM [None]
  - COLONIC STENOSIS [None]
  - CONSTIPATION [None]
  - DIVERTICULITIS [None]
  - FAECES DISCOLOURED [None]
  - GASTROINTESTINAL DISORDER [None]
  - HAEMATOCHEZIA [None]
  - IRON DEFICIENCY ANAEMIA [None]
  - LARGE INTESTINAL ULCER [None]
